FAERS Safety Report 4361106-9 (Version None)
Quarter: 2004Q2

REPORT INFORMATION
  Report Type: 
  Country: None (occurrence: None)
  Receive Date: 20040520
  Receipt Date: 20040514
  Transmission Date: 20050107
  Serious: Yes (Disabling)
  Sender: FDA-Public Use
  Company Number: GB-MERCK-0405GBR00113

PATIENT
  Age: 83 Year
  Sex: Female
  Weight: 72 kg

DRUGS (1)
  1. VIOXX [Suspect]
     Indication: PAIN
     Route: 048
     Dates: start: 20040416, end: 20040417

REACTIONS (1)
  - IIIRD NERVE PARALYSIS [None]
